FAERS Safety Report 7050902-5 (Version None)
Quarter: 2010Q4

REPORT INFORMATION
  Report Type: 
  Country: None (occurrence: None)
  Receive Date: 20101018
  Receipt Date: 20101018
  Transmission Date: 20110411
  Serious: No
  Sender: FDA-Public Use
  Company Number: None

PATIENT
  Age: 58 Year
  Sex: Male
  Weight: 65.5 kg

DRUGS (2)
  1. FLECAINIDE ACETATE [Suspect]
     Indication: ATRIAL FIBRILLATION
     Dosage: 100 MG TWICE A DAY ORALLY
     Route: 048
     Dates: start: 20080101
  2. TAMBOCOR [Suspect]

REACTIONS (2)
  - ATRIAL FIBRILLATION [None]
  - PRODUCT SUBSTITUTION ISSUE [None]
